FAERS Safety Report 9054112 (Version 1)
Quarter: 2013Q1

REPORT INFORMATION
  Report Type: Spontaneous
  Country: ZA (occurrence: ZA)
  Receive Date: 20130208
  Receipt Date: 20130208
  Transmission Date: 20140127
  Serious: Yes (Death)
  Sender: FDA-Public Use
  Company Number: ZA-PFIZER INC-2013048313

PATIENT
  Age: 82 Year
  Sex: Female

DRUGS (14)
  1. VFEND [Suspect]
     Dosage: 400 MG, UNK
  2. TIENAM [Concomitant]
  3. TAVANIC [Concomitant]
  4. PERFALGAN [Concomitant]
  5. CLEXANE [Concomitant]
  6. DORMICUM TABLET ^ROCHE^ [Concomitant]
  7. MORPHINE [Concomitant]
  8. LASIX [Concomitant]
  9. SOLU-CORTEF [Concomitant]
  10. VOLUVEN [Concomitant]
  11. VFEND [Concomitant]
  12. VANCOMYCIN [Concomitant]
  13. ADRENALINE [Concomitant]
  14. NOVORAPID [Concomitant]

REACTIONS (1)
  - Death [Fatal]
